FAERS Safety Report 21293952 (Version 1)
Quarter: 2022Q3

REPORT INFORMATION
  Report Type: Spontaneous
  Country: US (occurrence: US)
  Receive Date: 20220905
  Receipt Date: 20220905
  Transmission Date: 20221027
  Serious: Yes (Other)
  Sender: FDA-Public Use
  Company Number: US-APOTEX-2022AP012178

PATIENT
  Age: 43 Year
  Sex: Male

DRUGS (3)
  1. VALACYCLOVIR [Suspect]
     Active Substance: VALACYCLOVIR HYDROCHLORIDE
     Indication: Herpes zoster
     Dosage: 1 GRAM, TID
     Route: 065
  2. METOPROLOL [Concomitant]
     Active Substance: METOPROLOL
     Indication: Product used for unknown indication
     Dosage: UNK
     Route: 065
  3. ELIQUIS [Concomitant]
     Active Substance: APIXABAN
     Indication: Product used for unknown indication
     Dosage: UNK
     Route: 065

REACTIONS (7)
  - Toxic neuropathy [Recovered/Resolved]
  - Neurotoxicity [Recovered/Resolved]
  - Hallucinations, mixed [Recovered/Resolved]
  - Neuropsychiatric symptoms [Recovered/Resolved]
  - Affect lability [Recovered/Resolved]
  - Overdose [Unknown]
  - Drug-disease interaction [Recovered/Resolved]
